FAERS Safety Report 5485246-6 (Version None)
Quarter: 2007Q4

REPORT INFORMATION
  Report Type: 
  Country: None (occurrence: None)
  Receive Date: 20071010
  Receipt Date: 20071010
  Transmission Date: 20080405
  Serious: Yes (Life-Threatening)
  Sender: FDA-Public Use
  Company Number: None

PATIENT
  Age: 49 Year
  Sex: Female
  Weight: 55.3388 kg

DRUGS (1)
  1. KLONOPIN [Suspect]
     Indication: POST-TRAUMATIC STRESS DISORDER
     Dosage: 2 MG   5 X/DAY   PO
     Route: 048
     Dates: start: 19900103, end: 20060106

REACTIONS (5)
  - AMNESIA [None]
  - DRUG WITHDRAWAL SYNDROME [None]
  - ILL-DEFINED DISORDER [None]
  - NERVOUS SYSTEM DISORDER [None]
  - UNEVALUABLE EVENT [None]
